FAERS Safety Report 12537692 (Version 1)
Quarter: 2016Q3

REPORT INFORMATION
  Report Type: Spontaneous
  Country: CH (occurrence: CH)
  Receive Date: 20160707
  Receipt Date: 20160707
  Transmission Date: 20161109
  Serious: Yes (Death, Hospitalization)
  Sender: FDA-Public Use
  Company Number: CH-ASTRAZENECA-2016SE71466

PATIENT
  Age: 15374 Day
  Sex: Male

DRUGS (13)
  1. BACTRIM [Suspect]
     Active Substance: SULFAMETHOXAZOLE\TRIMETHOPRIM
     Route: 065
     Dates: start: 20160507, end: 20160609
  2. VALCYTE [Suspect]
     Active Substance: VALGANCICLOVIR HYDROCHLORIDE
     Route: 065
     Dates: start: 20160510, end: 20160514
  3. NOXAFIL [Concomitant]
     Active Substance: POSACONAZOLE
     Route: 065
     Dates: start: 20160530, end: 20160609
  4. SPORANOX [Suspect]
     Active Substance: ITRACONAZOLE
     Route: 065
     Dates: start: 20160509, end: 20160530
  5. INVANZ [Suspect]
     Active Substance: ERTAPENEM SODIUM
     Route: 065
     Dates: start: 20160514, end: 20160609
  6. FUNGIZONE [Concomitant]
     Active Substance: AMPHOTERICIN B
     Route: 065
     Dates: start: 20160520, end: 20160609
  7. MERONEM [Suspect]
     Active Substance: MEROPENEM
     Route: 042
     Dates: start: 20160507, end: 20160514
  8. ESOMEP [Suspect]
     Active Substance: ESOMEPRAZOLE
     Route: 048
  9. VANCOCIN [Suspect]
     Active Substance: VANCOMYCIN HYDROCHLORIDE
     Route: 065
     Dates: start: 20160512, end: 20160609
  10. CANCIDAS [Suspect]
     Active Substance: CASPOFUNGIN ACETATE
     Route: 065
     Dates: start: 20160507, end: 20160523
  11. CYMEVENE [Suspect]
     Active Substance: GANCICLOVIR
     Route: 065
     Dates: start: 20160508, end: 20160510
  12. COLISTIN [Concomitant]
     Active Substance: COLISTIN
     Route: 065
     Dates: start: 20160514, end: 20160609
  13. ACICLOVIR LABATEC [Concomitant]
     Route: 065
     Dates: start: 20160527, end: 20160531

REACTIONS (6)
  - Pancytopenia [Not Recovered/Not Resolved]
  - Sepsis [Fatal]
  - Multiple organ dysfunction syndrome [Fatal]
  - Transplant dysfunction [Unknown]
  - Bronchopulmonary aspergillosis [Unknown]
  - Candida infection [Unknown]

NARRATIVE: CASE EVENT DATE: 20160516
